FAERS Safety Report 5386794-X (Version None)
Quarter: 2007Q3

REPORT INFORMATION
  Report Type: 
  Country: None (occurrence: None)
  Receive Date: 20070713
  Receipt Date: 20070710
  Transmission Date: 20080115
  Serious: Yes (Life-Threatening)
  Sender: FDA-Public Use
  Company Number: US-BRISTOL-MYERS SQUIBB COMPANY-11614781

PATIENT
  Age: 1 Day
  Sex: Male

DRUGS (3)
  1. VIDEX [Suspect]
     Route: 064
     Dates: start: 20010612, end: 20011108
  2. RETROVIR [Suspect]
     Route: 064
     Dates: start: 20010327, end: 20011108
  3. EPIVIR [Suspect]
     Route: 064
     Dates: start: 20010327, end: 20011108

REACTIONS (2)
  - DUODENAL ATRESIA [None]
  - HEART DISEASE CONGENITAL [None]
